FAERS Safety Report 17098235 (Version 12)
Quarter: 2021Q3

REPORT INFORMATION
  Report Type: Spontaneous
  Country: US (occurrence: US)
  Receive Date: 20191202
  Receipt Date: 20210930
  Transmission Date: 20211014
  Serious: Yes (Other)
  Sender: FDA-Public Use
  Company Number: US-PFIZER INC-2019508379

PATIENT
  Age: 70 Year
  Sex: Female

DRUGS (2)
  1. EUCRISA [Suspect]
     Active Substance: CRISABOROLE
     Indication: DERMATITIS ATOPIC
     Dosage: 2%, APPLY TO TRUNK, ARM AND LEGS TWICE DIALY 60GRAM
  2. EUCRISA [Suspect]
     Active Substance: CRISABOROLE
     Indication: URTICARIA CHRONIC

REACTIONS (14)
  - Skin cancer [Unknown]
  - Insomnia [Not Recovered/Not Resolved]
  - Nervousness [Unknown]
  - Stress [Unknown]
  - Headache [Unknown]
  - Drug ineffective [Unknown]
  - Expired product administered [Unknown]
  - Condition aggravated [Unknown]
  - Oropharyngeal pain [Unknown]
  - Urticaria [Unknown]
  - Multiple allergies [Unknown]
  - Malaise [Not Recovered/Not Resolved]
  - Erythema [Unknown]
  - Anxiety [Unknown]
